FAERS Safety Report 7249150-5 (Version None)
Quarter: 2011Q1

REPORT INFORMATION
  Report Type: 
  Country: None (occurrence: None)
  Receive Date: 20110128
  Receipt Date: 20101130
  Transmission Date: 20110831
  Serious: Yes (Other)
  Sender: FDA-Public Use
  Company Number: US-BAYER-2010-003964

PATIENT
  Sex: Male

DRUGS (3)
  1. BLOOD PRESSURE MEDICATION (NOS) [Concomitant]
     Dosage: UNK
  2. NEXAVAR [Suspect]
     Indication: HEPATIC NEOPLASM MALIGNANT
     Dosage: 800 MG, BID
     Dates: start: 20101127, end: 20101129
  3. NEXAVAR [Suspect]
     Dosage: UNK, BID
     Dates: end: 20101216

REACTIONS (12)
  - EPISTAXIS [None]
  - CONSTIPATION [None]
  - URINARY TRACT INFECTION [None]
  - ABDOMINAL PAIN UPPER [None]
  - HYPOAESTHESIA [None]
  - FATIGUE [None]
  - DYSPHONIA [None]
  - HAEMOPTYSIS [None]
  - ARTHRALGIA [None]
  - HYPERSOMNIA [None]
  - HEADACHE [None]
  - ABDOMINAL RIGIDITY [None]
